FAERS Safety Report 9725397 (Version 1)
Quarter: 2013Q4

REPORT INFORMATION
  Report Type: Spontaneous
  Country: US (occurrence: None)
  Receive Date: 20131202
  Receipt Date: 20131202
  Transmission Date: 20140711
  Serious: Yes (Other)
  Sender: FDA-Public Use
  Company Number: None

PATIENT
  Age: 61 Year
  Sex: Male
  Weight: 122.47 kg

DRUGS (1)
  1. AMLODIPINE [Suspect]
     Indication: BLOOD PRESSURE
     Dosage: 1.5, INCREASING TO 2 TOMMOROW ONCE DAILY TAKEN BY MOUTH
     Route: 048
     Dates: start: 20131118, end: 20131127

REACTIONS (2)
  - Heart rate irregular [None]
  - Blood pressure increased [None]
